FAERS Safety Report 8851390 (Version 1)
Quarter: 2012Q4

REPORT INFORMATION
  Report Type: 
  Country: US (occurrence: US)
  Receive Date: 20121022
  Receipt Date: 20121022
  Transmission Date: 20130627
  Serious: Yes (Disabling, Other)
  Sender: FDA-Public Use
  Company Number: US-ROCHE-1120073

PATIENT
  Sex: Male

DRUGS (1)
  1. NUTROPIN [Suspect]
     Indication: DWARFISM
     Route: 065

REACTIONS (8)
  - Disability [Unknown]
  - Convulsion [Unknown]
  - Fatigue [Unknown]
  - Asthenia [Unknown]
  - Blood glucose decreased [Unknown]
  - Weight increased [Unknown]
  - Loss of consciousness [Unknown]
  - Asthenia [Unknown]
